FAERS Safety Report 9386090 (Version 2)
Quarter: 2015Q4

REPORT INFORMATION
  Report Type: Spontaneous
  Country: US (occurrence: US)
  Receive Date: 20130706
  Receipt Date: 20151211
  Transmission Date: 20160305
  Serious: Yes (Hospitalization, Other)
  Sender: FDA-Public Use
  Company Number: US-SANOFI-AVENTIS-2013SA067367

PATIENT
  Age: 47 Year

DRUGS (2)
  1. WARFARIN [Concomitant]
     Active Substance: WARFARIN
     Dates: start: 200708, end: 2011
  2. PLAVIX [Suspect]
     Active Substance: CLOPIDOGREL BISULFATE
     Indication: PROPHYLAXIS
     Route: 048
     Dates: start: 20061005, end: 20070402

REACTIONS (3)
  - Gallbladder disorder [Unknown]
  - Haemorrhage [Unknown]
  - Thrombotic thrombocytopenic purpura [Unknown]

NARRATIVE: CASE EVENT DATE: 200611
